FAERS Safety Report 9279375 (Version 1)
Quarter: 2013Q2

REPORT INFORMATION
  Report Type: Spontaneous
  Country: US (occurrence: US)
  Receive Date: 20130508
  Receipt Date: 20130508
  Transmission Date: 20140414
  Serious: Yes (Other)
  Sender: FDA-Public Use
  Company Number: US-CELGENEUS-163-21880-10070837

PATIENT
  Sex: 0

DRUGS (2)
  1. REVLIMID [Suspect]
     Indication: NON-HODGKIN^S LYMPHOMA
     Dosage: 20 MILLIGRAM
     Route: 048
  2. RITUXIMAB [Suspect]
     Indication: B-CELL LYMPHOMA
     Route: 041

REACTIONS (9)
  - Arterial thrombosis [Unknown]
  - Rash [Unknown]
  - Neutropenia [Unknown]
  - Myalgia [Unknown]
  - Neuropathy peripheral [Unknown]
  - Infection [Unknown]
  - Fatigue [Unknown]
  - Thrombocytopenia [Unknown]
  - Non-Hodgkin^s lymphoma [Unknown]
